FAERS Safety Report 24694507 (Version 1)
Quarter: 2024Q4

REPORT INFORMATION
  Report Type: Report from Study
  Country: CN (occurrence: CN)
  Receive Date: 20241204
  Receipt Date: 20241204
  Transmission Date: 20250114
  Serious: Yes (Hospitalization)
  Sender: ROCHE
  Company Number: CN-ROCHE-10000145456

PATIENT
  Age: 50 Year
  Sex: Female

DRUGS (1)
  1. KADCYLA [Suspect]
     Active Substance: ADO-TRASTUZUMAB EMTANSINE
     Indication: Breast cancer
     Dosage: ON 26 NOV 2024, THE PATIENT WAS PREPARED TO RECEIVE THE FOURTH INJECTION OF TRASTUZUMAB EMTANSINE
     Route: 042
     Dates: start: 20230924

REACTIONS (2)
  - Rib fracture [Not Recovered/Not Resolved]
  - Pulmonary contusion [Not Recovered/Not Resolved]

NARRATIVE: CASE EVENT DATE: 20241126
